FAERS Safety Report 8169962-3 (Version None)
Quarter: 2012Q1

REPORT INFORMATION
  Report Type: 
  Country: None (occurrence: None)
  Receive Date: 20120105
  Receipt Date: 20110407
  Transmission Date: 20120608
  Serious: Yes (Other)
  Sender: FDA-Public Use
  Company Number: US-005931

PATIENT
  Age: 49 Year
  Sex: Female

DRUGS (7)
  1. PROHANCE [Suspect]
     Indication: MAMMOGRAM ABNORMAL
     Dosage: 20ML ONCE INTRAVENOUS (NOT OTHERWISE SPECIFIED)
     Route: 042
     Dates: start: 20110129, end: 20110129
  2. PROHANCE [Suspect]
     Indication: NUCLEAR MAGNETIC RESONANCE IMAGING
     Dosage: 20ML ONCE INTRAVENOUS (NOT OTHERWISE SPECIFIED)
     Route: 042
     Dates: start: 20110129, end: 20110129
  3. LEVOTHYROXINE SODIUM [Concomitant]
  4. TRIAMTERENE AND HYDROCHLOROTHIAZIDE [Concomitant]
  5. ATENOLOL [Concomitant]
  6. FOLIC ACID [Concomitant]
  7. PRAVASTATIN [Concomitant]

REACTIONS (3)
  - CONVULSION [None]
  - CHEST PAIN [None]
  - DYSPNOEA [None]
